FAERS Safety Report 9364524 (Version 2)
Quarter: 2013Q3

REPORT INFORMATION
  Report Type: Spontaneous
  Country: JP (occurrence: JP)
  Receive Date: 20130624
  Receipt Date: 20130712
  Transmission Date: 20140515
  Serious: Yes (Other)
  Sender: FDA-Public Use
  Company Number: JP-PFIZER INC-2013185532

PATIENT
  Age: 6 Year
  Sex: Male

DRUGS (1)
  1. SOMATROPIN [Suspect]
     Dosage: UNK

REACTIONS (3)
  - Sleep apnoea syndrome [Recovered/Resolved]
  - Adenoidal hypertrophy [Recovered/Resolved]
  - Tonsillar hypertrophy [Recovered/Resolved]
